FAERS Safety Report 9781090 (Version 1)
Quarter: 2013Q4

REPORT INFORMATION
  Report Type: Spontaneous
  Country: US (occurrence: None)
  Receive Date: 20131223
  Receipt Date: 20131223
  Transmission Date: 20140711
  Serious: Yes (Disabling)
  Sender: FDA-Public Use
  Company Number: None

PATIENT
  Age: 28 Year
  Sex: Female
  Weight: 80.74 kg

DRUGS (5)
  1. EFFEXOR XR [Suspect]
     Indication: ANXIETY
     Dosage: 1 CAPSULE
     Route: 048
     Dates: start: 20130904, end: 20131004
  2. EFFEXOR XR [Suspect]
     Indication: DEPRESSION
     Dosage: 1 CAPSULE
     Route: 048
     Dates: start: 20130904, end: 20131004
  3. EFFEXOR XR [Suspect]
     Indication: PANIC ATTACK
     Dosage: 1 CAPSULE
     Route: 048
     Dates: start: 20130904, end: 20131004
  4. WELLBUTRIN SR [Suspect]
     Indication: ANXIETY
     Route: 048
     Dates: start: 20131013, end: 20131209
  5. WELLBUTRIN SR [Suspect]
     Indication: DEPRESSION
     Route: 048
     Dates: start: 20131013, end: 20131209

REACTIONS (6)
  - Headache [None]
  - Dizziness [None]
  - Dyspnoea [None]
  - Palpitations [None]
  - Hypertension [None]
  - Anxiety [None]
